FAERS Safety Report 23063204 (Version 1)
Quarter: 2023Q4

REPORT INFORMATION
  Report Type: Spontaneous
  Country: US (occurrence: US)
  Receive Date: 20231013
  Receipt Date: 20231013
  Transmission Date: 20240109
  Serious: Yes (Death, Other)
  Sender: FDA-Public Use
  Company Number: US-GLAXOSMITHKLINE-US2023138949

PATIENT

DRUGS (1)
  1. MEPRON [Suspect]
     Active Substance: ATOVAQUONE
     Indication: Product used for unknown indication
     Dosage: 10 ML, QD (WITH BREAKFAST)
     Route: 048
     Dates: end: 20231004

REACTIONS (1)
  - Death [Fatal]

NARRATIVE: CASE EVENT DATE: 20231004
